FAERS Safety Report 21722262 (Version 1)
Quarter: 2022Q4

REPORT INFORMATION
  Report Type: Spontaneous
  Country: US (occurrence: None)
  Receive Date: 20221212
  Receipt Date: 20221212
  Transmission Date: 20230113
  Serious: No
  Sender: FDA-Public Use
  Company Number: None

PATIENT
  Age: 66 Year
  Sex: Female

DRUGS (1)
  1. LENALIDOMIDE HEMIHYDRATE [Suspect]
     Active Substance: LENALIDOMIDE HEMIHYDRATE
     Indication: Plasma cell myeloma
     Dosage: FREQUENCY : DAILY;?
     Route: 048
     Dates: start: 20200914

REACTIONS (3)
  - Tinnitus [None]
  - Abdominal discomfort [None]
  - Taste disorder [None]

NARRATIVE: CASE EVENT DATE: 20221117
